FAERS Safety Report 16687673 (Version 1)
Quarter: 2019Q3

REPORT INFORMATION
  Report Type: Spontaneous
  Country: US (occurrence: US)
  Receive Date: 20190624
  Receipt Date: 20190624
  Transmission Date: 20191004
  Serious: No
  Sender: FDA-Public Use
  Company Number: None

PATIENT
  Age: 84 Year
  Sex: Female
  Weight: 64.41 kg

DRUGS (2)
  1. OMEGA 3 FISH OIL [Concomitant]
     Active Substance: FISH OIL\OMEGA-3 FATTY ACIDS
  2. SYNTHROID [Suspect]
     Active Substance: LEVOTHYROXINE SODIUM
     Indication: AUTOIMMUNE THYROIDITIS
     Dosage: ?          QUANTITY:1 DF DOSAGE FORM;?
     Route: 048
     Dates: start: 20190405, end: 20190530

REACTIONS (6)
  - Product physical consistency issue [None]
  - Muscle spasms [None]
  - Ill-defined disorder [None]
  - Neck mass [None]
  - Product taste abnormal [None]
  - Nausea [None]

NARRATIVE: CASE EVENT DATE: 20190405
